FAERS Safety Report 25452572 (Version 4)
Quarter: 2025Q4

REPORT INFORMATION
  Report Type: Report from Study
  Country: US (occurrence: US)
  Receive Date: 20250618
  Receipt Date: 20251211
  Transmission Date: 20260118
  Serious: Yes (Hospitalization, Other)
  Sender: JOHNSON AND JOHNSON
  Company Number: US-JNJFOC-20250500887

PATIENT
  Sex: Female

DRUGS (2)
  1. TECVAYLI [Suspect]
     Active Substance: TECLISTAMAB-CQYV
     Indication: Plasma cell myeloma
     Route: 058
  2. IMMUNE GLOBULIN NOS [Suspect]
     Active Substance: IMMUNE GLOBULIN NOS

REACTIONS (12)
  - Neuropathy peripheral [Recovered/Resolved]
  - Pneumonia [Unknown]
  - Breast cancer [Unknown]
  - Infusion related reaction [Unknown]
  - Fatigue [Not Recovered/Not Resolved]
  - Nausea [Not Recovered/Not Resolved]
  - Injection site pain [Unknown]
  - Dyspnoea [Unknown]
  - Nasopharyngitis [Unknown]
  - Injection site erythema [Not Recovered/Not Resolved]
  - Back pain [Unknown]
  - Injection site pruritus [Unknown]
